FAERS Safety Report 26121961 (Version 1)
Quarter: 2025Q4

REPORT INFORMATION
  Report Type: Spontaneous
  Country: US (occurrence: US)
  Receive Date: 20251204
  Receipt Date: 20251204
  Transmission Date: 20260118
  Serious: Yes (Hospitalization)
  Sender: AMGEN
  Company Number: US-AMGEN-USASP2025239217

PATIENT
  Age: 35 Year
  Sex: Male

DRUGS (6)
  1. PREDNISONE [Suspect]
     Active Substance: PREDNISONE
     Indication: Type 2 lepra reaction
     Dosage: UNK, 8-DAYS TAPER
     Route: 065
  2. RIFAMPIN [Concomitant]
     Active Substance: RIFAMPIN
     Dosage: UNK
     Dates: end: 202209
  3. RIFAMPIN [Concomitant]
     Active Substance: RIFAMPIN
     Dosage: UNK
     Dates: end: 202406
  4. DAPSONE [Concomitant]
     Active Substance: DAPSONE
     Dosage: UNK
     Dates: end: 202209
  5. DAPSONE [Concomitant]
     Active Substance: DAPSONE
     Dosage: UNK
     Dates: end: 202406
  6. THALIDOMIDE [Concomitant]
     Active Substance: THALIDOMIDE

REACTIONS (2)
  - Lepromatous leprosy [Unknown]
  - Off label use [Unknown]
